FAERS Safety Report 18364326 (Version 1)
Quarter: 2020Q4

REPORT INFORMATION
  Report Type: Spontaneous
  Country: GB (occurrence: GB)
  Receive Date: 20201009
  Receipt Date: 20201009
  Transmission Date: 20210114
  Serious: No
  Sender: FDA-Public Use
  Company Number: GB-GW PHARMA-202009GBGW03332

PATIENT

DRUGS (15)
  1. CLOBAZAM. [Interacting]
     Active Substance: CLOBAZAM
     Dosage: 7.5 MILLIGRAM, QD (NOCTE)
     Route: 065
     Dates: start: 202007, end: 202008
  2. EPIDIOLEX [Interacting]
     Active Substance: CANNABIDIOL
     Dosage: 4.1 MG/KG/DAY, 180 MILLIGRAM, BID
     Route: 048
     Dates: start: 202006, end: 202008
  3. CLOBAZAM. [Interacting]
     Active Substance: CLOBAZAM
     Dosage: 5 MILLIGRAM, BID
     Route: 065
     Dates: start: 202006, end: 202006
  4. VALPROIC ACID. [Concomitant]
     Active Substance: VALPROIC ACID
     Indication: PRODUCT USED FOR UNKNOWN INDICATION
     Dosage: 1000 MILLIGRAM, BID
     Route: 065
  5. EPIDIOLEX [Suspect]
     Active Substance: CANNABIDIOL
     Indication: LENNOX-GASTAUT SYNDROME
     Dosage: 5.1 MG/KG/DAY, 220 MILLIGRAM, BID
     Route: 048
     Dates: start: 202003, end: 202006
  6. EPIDIOLEX [Interacting]
     Active Substance: CANNABIDIOL
     Dosage: 5.1 MG/KG/DAY, 220 MILLIGRAM, BID
     Route: 048
     Dates: start: 202008
  7. CLOBAZAM. [Interacting]
     Active Substance: CLOBAZAM
     Dosage: UNK, (REDUCED DOSE)
     Route: 065
     Dates: start: 202004, end: 202005
  8. CLOBAZAM. [Interacting]
     Active Substance: CLOBAZAM
     Dosage: 10 MILLIGRAM, QD (NOCTE)
     Route: 065
     Dates: start: 202008
  9. CLOBAZAM. [Interacting]
     Active Substance: CLOBAZAM
     Dosage: 15 MILLIGRAM, QD (5MG/10MG)
     Route: 065
     Dates: start: 202006, end: 202006
  10. CLOBAZAM. [Interacting]
     Active Substance: CLOBAZAM
     Dosage: 10 MILLIGRAM, QD (NOCTE)
     Route: 065
     Dates: start: 202006, end: 202007
  11. VALPROIC ACID. [Concomitant]
     Active Substance: VALPROIC ACID
     Dosage: 800 MILLIGRAM, BID
     Route: 065
     Dates: start: 202008
  12. LAMOTRIGINE. [Concomitant]
     Active Substance: LAMOTRIGINE
     Indication: PRODUCT USED FOR UNKNOWN INDICATION
     Dosage: 200 MILLIGRAM, BID
     Route: 065
  13. CLOBAZAM. [Interacting]
     Active Substance: CLOBAZAM
     Indication: PRODUCT USED FOR UNKNOWN INDICATION
     Dosage: 45 MILLIGRAM, QD (20MG/25MG)
     Route: 065
  14. CLOBAZAM. [Interacting]
     Active Substance: CLOBAZAM
     Dosage: UNK, (REDUCED DOSE)
     Route: 065
     Dates: start: 202005, end: 202006
  15. LAMOTRIGINE. [Concomitant]
     Active Substance: LAMOTRIGINE
     Dosage: 350 MILLIGRAM, QD (150MG/200MG)
     Route: 065
     Dates: start: 202007

REACTIONS (7)
  - Partial seizures [Unknown]
  - Alopecia [Recovering/Resolving]
  - Drug interaction [Unknown]
  - Hypersomnia [Recovering/Resolving]
  - Gait disturbance [Recovering/Resolving]
  - Vomiting [Recovered/Resolved]
  - Fatigue [Unknown]

NARRATIVE: CASE EVENT DATE: 202004
